FAERS Safety Report 4580863-X (Version None)
Quarter: 2005Q1

REPORT INFORMATION
  Report Type: 
  Country: None (occurrence: None)
  Receive Date: 20050214
  Receipt Date: 20040616
  Transmission Date: 20050727
  Serious: No
  Sender: FDA-Public Use
  Company Number: US-GLAXOSMITHKLINE-A0514859A

PATIENT
  Age: 61 Year
  Sex: Male

DRUGS (5)
  1. LAMICTAL [Suspect]
     Indication: BIPOLAR DISORDER
     Dosage: 200MG PER DAY
     Route: 048
     Dates: start: 20040501
  2. WELLBUTRIN [Concomitant]
  3. TOPAMAX [Concomitant]
  4. SERZONE [Concomitant]
  5. REMERON [Concomitant]

REACTIONS (2)
  - DEPRESSION [None]
  - LYMPHADENOPATHY [None]
